FAERS Safety Report 9106661 (Version 1)
Quarter: 2013Q1

REPORT INFORMATION
  Report Type: Spontaneous
  Country: US (occurrence: US)
  Receive Date: 20130221
  Receipt Date: 20130221
  Transmission Date: 20140127
  Serious: Yes (Hospitalization)
  Sender: FDA-Public Use
  Company Number: PHEH2013US003608

PATIENT
  Sex: Female

DRUGS (3)
  1. TEKTURNA [Suspect]
     Dosage: UNK UKN, UNK
  2. LISINOPRIL [Suspect]
  3. TENORMIN [Suspect]
     Dosage: UNK UKN, UNK

REACTIONS (3)
  - Chest pain [Unknown]
  - Gait disturbance [Unknown]
  - Fatigue [Unknown]
